FAERS Safety Report 5947245-7 (Version None)
Quarter: 2008Q4

REPORT INFORMATION
  Report Type: 
  Country: None (occurrence: None)
  Receive Date: 20081110
  Receipt Date: 20081029
  Transmission Date: 20090506
  Serious: No
  Sender: FDA-Public Use
  Company Number: US-B.I. PHARMACEUTICALS,INC./RIDGEFIELD-2008-BP-16501BP

PATIENT
  Age: 79 Year
  Sex: Female

DRUGS (7)
  1. CATAPRES [Suspect]
     Indication: HYPERTENSION
     Dosage: .2MG
     Route: 061
     Dates: start: 20070101
  2. CAPTOPRIL [Concomitant]
     Indication: HYPERTENSION
  3. PROPRANOLOL [Concomitant]
     Indication: HYPERTENSION
  4. GLIPIZIDE [Concomitant]
     Indication: DIABETES MELLITUS
  5. BENICAR [Concomitant]
     Indication: HYPERTENSION
  6. SERTRALINE [Concomitant]
     Indication: DEPRESSION
  7. ALPRAZOLAM [Concomitant]
     Indication: ANXIETY

REACTIONS (2)
  - CATARACT [None]
  - HYPERTENSION [None]
